FAERS Safety Report 25139139 (Version 1)
Quarter: 2025Q1

REPORT INFORMATION
  Report Type: Spontaneous
  Country: FR (occurrence: FR)
  Receive Date: 20250331
  Receipt Date: 20250331
  Transmission Date: 20250409
  Serious: Yes (Hospitalization, Other)
  Sender: AUROBINDO
  Company Number: FR-AFSSAPS-TS2025000279

PATIENT
  Age: 13 Year
  Sex: Female
  Weight: 40 kg

DRUGS (1)
  1. ACETAMINOPHEN [Suspect]
     Active Substance: ACETAMINOPHEN
     Indication: Headache
     Route: 048
     Dates: start: 20250219, end: 20250219

REACTIONS (3)
  - Hepatic cytolysis [Recovering/Resolving]
  - Vomiting [Recovered/Resolved]
  - Wrong dose [Recovered/Resolved]

NARRATIVE: CASE EVENT DATE: 20250219
